FAERS Safety Report 11583432 (Version 2)
Quarter: 2015Q4

REPORT INFORMATION
  Report Type: Spontaneous
  Country: US (occurrence: US)
  Receive Date: 20151001
  Receipt Date: 20151117
  Transmission Date: 20160304
  Serious: Yes (Life-Threatening)
  Sender: FDA-Public Use
  Company Number: US-BAYER-2015-430417

PATIENT
  Age: 10 Month
  Sex: Female

DRUGS (2)
  1. GADAVIST [Suspect]
     Active Substance: GADOBUTROL
     Indication: NUCLEAR MAGNETIC RESONANCE IMAGING
     Dosage: 1 ML, ONCE
     Route: 042
     Dates: start: 20150924, end: 20150924
  2. GADAVIST [Suspect]
     Active Substance: GADOBUTROL
     Indication: MASS

REACTIONS (3)
  - Bronchospasm [None]
  - Anaphylactic reaction [None]
  - Bradycardia [None]

NARRATIVE: CASE EVENT DATE: 20150924
